FAERS Safety Report 9145773 (Version 1)
Quarter: 2013Q1

REPORT INFORMATION
  Report Type: Spontaneous
  Country: US (occurrence: None)
  Receive Date: 20130227
  Receipt Date: 20130227
  Transmission Date: 20140127
  Serious: Yes (Other)
  Sender: FDA-Public Use
  Company Number: None

PATIENT
  Age: 45 Year
  Sex: Female
  Weight: 74.84 kg

DRUGS (5)
  1. ABILIFY [Suspect]
     Indication: ADJUVANT THERAPY
     Dosage: 10 MG 1 X DAILY PO
     Route: 048
     Dates: start: 20080910, end: 20120115
  2. ABILIFY [Suspect]
     Indication: DEPRESSION
     Dosage: 10 MG 1 X DAILY PO
     Route: 048
     Dates: start: 20080910, end: 20120115
  3. PROZAC [Concomitant]
  4. WELLBUTRIN [Concomitant]
  5. TOPAMAX [Concomitant]

REACTIONS (5)
  - Amnesia [None]
  - Petit mal epilepsy [None]
  - Migraine [None]
  - Weight increased [None]
  - Dyskinesia [None]
